FAERS Safety Report 17880249 (Version 3)
Quarter: 2020Q3

REPORT INFORMATION
  Report Type: Report from Study
  Country: IT (occurrence: IT)
  Receive Date: 20200610
  Receipt Date: 20200717
  Transmission Date: 20201103
  Serious: Yes (Other)
  Sender: FDA-Public Use
  Company Number: IT-CELGENEUS-ITA-20200601786

PATIENT
  Age: 80 Year
  Sex: Female
  Weight: 57 kg

DRUGS (19)
  1. PARIET [Concomitant]
     Active Substance: RABEPRAZOLE SODIUM
     Indication: PROPHYLAXIS
     Dosage: 20 MILLIGRAM
     Route: 048
     Dates: start: 2015
  2. EMORTROFINE [Concomitant]
     Indication: HAEMORRHOIDS
     Dosage: 1 DOSAGE FORMS
     Route: 048
     Dates: start: 20200312
  3. ACCOFIL [Concomitant]
     Active Substance: FILGRASTIM
     Route: 058
     Dates: start: 20200507, end: 20200507
  4. DEXAMETHASONE. [Suspect]
     Active Substance: DEXAMETHASONE
     Indication: PLASMA CELL MYELOMA
     Route: 048
     Dates: start: 20200316, end: 20200424
  5. TACHIPIRINA [Concomitant]
     Active Substance: ACETAMINOPHEN
     Indication: PAIN
     Route: 048
     Dates: start: 20200421
  6. ACICLOVIR [Concomitant]
     Active Substance: ACYCLOVIR
     Indication: PROPHYLAXIS
     Dosage: 800 MILLIGRAM
     Route: 048
     Dates: start: 2015
  7. EMORTROFINE [Concomitant]
     Indication: PROPHYLAXIS
     Dosage: 3 DOSAGE FORMS
     Route: 065
     Dates: start: 20200306
  8. BACTRIM [Concomitant]
     Active Substance: SULFAMETHOXAZOLE\TRIMETHOPRIM
     Indication: PROPHYLAXIS
     Route: 048
     Dates: start: 201906, end: 20200521
  9. CALCIUM SANDOZ [Concomitant]
     Active Substance: CALCIUM
     Indication: PROPHYLAXIS
     Dosage: 1 MILLIGRAM
     Route: 048
     Dates: start: 2015, end: 20200503
  10. RETACRIT [Concomitant]
     Active Substance: EPOETIN ALFA-EPBX
     Indication: PROPHYLAXIS
     Dosage: 40000? IU (INTERNATIONAL UNIT)
     Route: 058
     Dates: start: 20200316, end: 20200524
  11. CLEXANE [Concomitant]
     Active Substance: ENOXAPARIN SODIUM
     Indication: PROPHYLAXIS
     Route: 058
     Dates: start: 20200414, end: 20200430
  12. LEVOPRAID [Concomitant]
     Indication: NAUSEA
     Dosage: 30 DROPS
     Route: 048
     Dates: start: 20200430, end: 20200514
  13. POMALIDOMIDE [Suspect]
     Active Substance: POMALIDOMIDE
     Dosage: 3 MILLIGRAM
     Route: 048
     Dates: start: 2020, end: 20200525
  14. PLATELETS [Concomitant]
     Active Substance: HUMAN PLATELET, ALLOGENIC
     Indication: THROMBOCYTOPENIA
     Dosage: 1 BAG
     Route: 041
     Dates: start: 20200504, end: 20200504
  15. PLATELETS [Concomitant]
     Active Substance: HUMAN PLATELET, ALLOGENIC
     Dosage: 1 BAG
     Route: 041
     Dates: start: 20200511, end: 20200511
  16. DEXAMETHASONE. [Suspect]
     Active Substance: DEXAMETHASONE
     Route: 048
     Dates: start: 2020, end: 20200525
  17. DIBASE [Concomitant]
     Active Substance: CHOLECALCIFEROL
     Indication: PROPHYLAXIS
     Dosage: 25000 MILLIGRAM
     Route: 048
     Dates: start: 2015
  18. ACCOFIL [Concomitant]
     Active Substance: FILGRASTIM
     Indication: NEUTROPENIA
     Dosage: 30 MILLION UNITS
     Route: 058
     Dates: start: 20200504, end: 20200504
  19. POMALIDOMIDE [Suspect]
     Active Substance: POMALIDOMIDE
     Indication: PLASMA CELL MYELOMA
     Dosage: 3 MILLIGRAM
     Route: 048
     Dates: start: 20200316, end: 20200429

REACTIONS (1)
  - Myelodysplastic syndrome [Not Recovered/Not Resolved]

NARRATIVE: CASE EVENT DATE: 20200511
